FAERS Safety Report 4975955-7 (Version None)
Quarter: 2006Q2

REPORT INFORMATION
  Report Type: 
  Country: None (occurrence: None)
  Receive Date: 20060412
  Receipt Date: 20060403
  Transmission Date: 20061013
  Serious: Yes (Other)
  Sender: FDA-Public Use
  Company Number: 2006-03-1773

PATIENT
  Sex: Male

DRUGS (1)
  1. AERIUS [Suspect]
     Indication: HYPERSENSITIVITY
     Dosage: 5 MG QD ORAL
     Route: 048
     Dates: start: 20050501

REACTIONS (2)
  - CONDITION AGGRAVATED [None]
  - GLAUCOMA [None]
